FAERS Safety Report 21898252 (Version 1)
Quarter: 2023Q1

REPORT INFORMATION
  Report Type: Spontaneous
  Country: KR (occurrence: KR)
  Receive Date: 20230123
  Receipt Date: 20230123
  Transmission Date: 20230418
  Serious: Yes (Other)
  Sender: FDA-Public Use
  Company Number: KR-MYLANLABS-2023M1005478

PATIENT
  Age: 76 Year
  Sex: Male
  Weight: 74.8 kg

DRUGS (1)
  1. XANAX [Suspect]
     Active Substance: ALPRAZOLAM
     Indication: Complication associated with device
     Dosage: 0.25 MILLIGRAM, QD, (1 FORMULATION, DAILY)
     Route: 048
     Dates: start: 20210125, end: 20210125

REACTIONS (2)
  - Delirium [Recovered/Resolved]
  - Off label use [Unknown]

NARRATIVE: CASE EVENT DATE: 20210125
